FAERS Safety Report 18659673 (Version 1)
Quarter: 2020Q4

REPORT INFORMATION
  Report Type: Spontaneous
  Country: US (occurrence: US)
  Receive Date: 20201224
  Receipt Date: 20201224
  Transmission Date: 20210114
  Serious: Yes (Hospitalization)
  Sender: FDA-Public Use
  Company Number: US-JNJFOC-20201236160

PATIENT
  Age: 84 Year
  Sex: Male

DRUGS (12)
  1. RUXOLITINIB PHOSPHATE [Suspect]
     Active Substance: RUXOLITINIB PHOSPHATE
     Route: 048
  2. XARELTO [Suspect]
     Active Substance: RIVAROXABAN
     Indication: PRODUCT USED FOR UNKNOWN INDICATION
     Route: 048
  3. FUROSEMIDE. [Concomitant]
     Active Substance: FUROSEMIDE
  4. VITAMINS NOS [Concomitant]
     Active Substance: VITAMINS
     Dates: start: 20201114
  5. RUXOLITINIB PHOSPHATE [Suspect]
     Active Substance: RUXOLITINIB PHOSPHATE
     Indication: MYELOFIBROSIS
     Route: 048
     Dates: start: 20200929, end: 20201113
  6. CETAPHIL [CETYL ALCOHOL;SODIUM LAURYL SULFATE;STEARYL ALCOHOL] [Concomitant]
  7. APAP [Concomitant]
     Active Substance: ACETAMINOPHEN
  8. LOTRIMIN AF [CLOTRIMAZOLE] [Concomitant]
  9. POTASSIUM CHLORIDE. [Concomitant]
     Active Substance: POTASSIUM CHLORIDE
  10. VIMPAT [Concomitant]
     Active Substance: LACOSAMIDE
  11. XIFAXAN [Concomitant]
     Active Substance: RIFAXIMIN
  12. SPIRONOLACTONE. [Concomitant]
     Active Substance: SPIRONOLACTONE

REACTIONS (6)
  - Platelet count decreased [Recovered/Resolved]
  - Cardiac disorder [Not Recovered/Not Resolved]
  - Rash [Recovered/Resolved]
  - Faeces discoloured [Not Recovered/Not Resolved]
  - Wound haemorrhage [Not Recovered/Not Resolved]
  - Dizziness [Recovering/Resolving]
